FAERS Safety Report 6679800-3 (Version None)
Quarter: 2010Q2

REPORT INFORMATION
  Report Type: 
  Country: None (occurrence: None)
  Receive Date: 20100413
  Receipt Date: 20090210
  Transmission Date: 20101027
  Serious: No
  Sender: FDA-Public Use
  Company Number: US-ASTRAZENECA-2005UW02423

PATIENT
  Age: 70 Year
  Sex: Female
  Weight: 81.6 kg

DRUGS (6)
  1. TENORMIN [Suspect]
     Indication: HYPERTENSION
     Dosage: 50 MG IN AM / 100 MG IN PM
     Route: 048
     Dates: start: 19870101
  2. TENORMIN [Suspect]
     Indication: PALPITATIONS
     Dosage: 50 MG IN AM / 100 MG IN PM
     Route: 048
     Dates: start: 19870101
  3. TENORMIN [Suspect]
     Dosage: 100 MG IN AM / 100 MG IN PM
     Route: 048
     Dates: start: 20090101
  4. TENORMIN [Suspect]
     Dosage: 100 MG IN AM / 100 MG IN PM
     Route: 048
     Dates: start: 20090101
  5. GLUCOTROL [Concomitant]
  6. LASIX [Concomitant]

REACTIONS (9)
  - ANXIETY [None]
  - DYSPHAGIA [None]
  - DYSPNOEA [None]
  - ILL-DEFINED DISORDER [None]
  - JOINT SWELLING [None]
  - OEDEMA PERIPHERAL [None]
  - PALPITATIONS [None]
  - RASH [None]
  - WEIGHT INCREASED [None]
